FAERS Safety Report 9591972 (Version 2)
Quarter: 2013Q4

REPORT INFORMATION
  Report Type: Spontaneous
  Country: US (occurrence: US)
  Receive Date: 20131004
  Receipt Date: 20131004
  Transmission Date: 20140711
  Serious: No
  Sender: FDA-Public Use
  Company Number: US-AMGEN-USASP2013064022

PATIENT
  Age: 10 Year
  Sex: Female
  Weight: 30.38 kg

DRUGS (7)
  1. ENBREL [Suspect]
     Indication: PRODUCT USED FOR UNKNOWN INDICATION
     Dosage: 25 MG, 2 TIMES/WK
     Route: 058
  2. NAPROSYN                           /00256201/ [Concomitant]
     Dosage: 250 MG, UNK
  3. METHOTREXATE [Concomitant]
     Dosage: 2.5 MG, UNK
  4. PREDNISONE [Concomitant]
     Dosage: 1 MG, UNK
  5. NEXIUM                             /01479302/ [Concomitant]
     Dosage: 20 MG, UNK
  6. CLARITIN                           /00917501/ [Concomitant]
     Dosage: 10 MG, UNK
  7. FOLIC ACID [Concomitant]
     Dosage: UNK

REACTIONS (3)
  - Injection site bruising [Unknown]
  - Injection site mass [Unknown]
  - Injection site swelling [Recovering/Resolving]
